FAERS Safety Report 7706254-8 (Version None)
Quarter: 2011Q3

REPORT INFORMATION
  Report Type: 
  Country: None (occurrence: None)
  Receive Date: 20110824
  Receipt Date: 20110819
  Transmission Date: 20111222
  Serious: Yes (Other)
  Sender: FDA-Public Use
  Company Number: ES-ROCHE-784471

PATIENT
  Age: 66 Year
  Sex: Female

DRUGS (1)
  1. TRASTUZUMAB [Suspect]
     Route: 065

REACTIONS (1)
  - CARDIAC FAILURE [None]
